FAERS Safety Report 7285633-X (Version None)
Quarter: 2011Q1

REPORT INFORMATION
  Report Type: 
  Country: None (occurrence: None)
  Receive Date: 20110210
  Receipt Date: 20110207
  Transmission Date: 20110831
  Serious: Yes (Other)
  Sender: FDA-Public Use
  Company Number: A0883767A

PATIENT
  Age: 61 Year
  Sex: Female

DRUGS (2)
  1. HERCEPTIN [Concomitant]
  2. TYKERB [Suspect]
     Indication: BREAST CANCER
     Dosage: 4TAB PER DAY
     Route: 048
     Dates: start: 20090828

REACTIONS (12)
  - PLEURAL EFFUSION [None]
  - SWELLING [None]
  - COLLAPSE OF LUNG [None]
  - DIARRHOEA [None]
  - DRUG INEFFECTIVE [None]
  - INSOMNIA [None]
  - NEOPLASM MALIGNANT [None]
  - WEIGHT DECREASED [None]
  - SKIN LESION [None]
  - MUSCLE SPASMS [None]
  - MUSCLE TWITCHING [None]
  - CONDITION AGGRAVATED [None]
